FAERS Safety Report 12824033 (Version 4)
Quarter: 2016Q4

REPORT INFORMATION
  Report Type: Spontaneous
  Country: BR (occurrence: BR)
  Receive Date: 20161007
  Receipt Date: 20161123
  Transmission Date: 20170207
  Serious: Yes (Other)
  Sender: FDA-Public Use
  Company Number: BR-PFIZER INC-2016464794

PATIENT
  Age: 66 Year
  Sex: Female
  Weight: 60 kg

DRUGS (7)
  1. FOLINIC ACID [Suspect]
     Active Substance: LEUCOVORIN
     Indication: PANCREATIC NEUROENDOCRINE TUMOUR
     Dosage: 668 MG (400 MG/M2) EVERY 14 DAYS
     Route: 042
     Dates: start: 20160728
  2. FLUOROURACIL. [Suspect]
     Active Substance: FLUOROURACIL
     Indication: PANCREATIC NEUROENDOCRINE TUMOUR
     Dosage: 2400 MG/M2 IN 46 HOURS EVERY 14 DAYS
     Route: 042
     Dates: start: 20160728
  3. CAMPTOSAR [Suspect]
     Active Substance: IRINOTECAN HYDROCHLORIDE
     Indication: PANCREATIC NEUROENDOCRINE TUMOUR
     Dosage: 300 MG (180 MG/M2) EVERY 14 DAYS
     Route: 042
     Dates: start: 20160728
  4. OXALIPLATIN. [Suspect]
     Active Substance: OXALIPLATIN
     Indication: PANCREATIC NEUROENDOCRINE TUMOUR
     Dosage: 142 MG (85 MG/M2) IN 2H EVERY 14 DAYS
     Route: 042
     Dates: start: 20160728
  5. EUTIROX [Concomitant]
     Active Substance: LEVOTHYROXINE SODIUM
     Dosage: 100 UG, UNK
     Dates: start: 20121218
  6. SOTALOL. [Concomitant]
     Active Substance: SOTALOL
     Dosage: 60 MG, UNK
     Dates: start: 20151113
  7. ANSITEC [Concomitant]
     Active Substance: BUSPIRONE HYDROCHLORIDE
     Dosage: 1 ^CP^
     Dates: start: 20151025

REACTIONS (7)
  - Gastrointestinal toxicity [Unknown]
  - Neurotoxicity [Recovered/Resolved]
  - Dyspnoea [Recovered/Resolved]
  - Dysphonia [Recovered/Resolved]
  - Nausea [Unknown]
  - Diarrhoea [Unknown]
  - Blood calcium increased [Unknown]

NARRATIVE: CASE EVENT DATE: 20160908
